FAERS Safety Report 20416952 (Version 1)
Quarter: 2022Q1

REPORT INFORMATION
  Report Type: Spontaneous
  Country: US (occurrence: None)
  Receive Date: 20220202
  Receipt Date: 20220202
  Transmission Date: 20220423
  Serious: No
  Sender: FDA-Public Use
  Company Number: None

PATIENT
  Age: 67 Year
  Sex: Female
  Weight: 51.75 kg

DRUGS (1)
  1. ZOLEDRONIC ACID [Suspect]
     Active Substance: ZOLEDRONIC ACID
     Indication: Osteoporosis
     Dosage: OTHER FREQUENCY : ONE-TIME INFUSION;?
     Dates: start: 20211105

REACTIONS (14)
  - Infusion related reaction [None]
  - Chills [None]
  - Myalgia [None]
  - Fatigue [None]
  - Nausea [None]
  - Insomnia [None]
  - Back pain [None]
  - Headache [None]
  - Palpitations [None]
  - Asthenia [None]
  - Decreased appetite [None]
  - Hypocalcaemia [None]
  - Feeling abnormal [None]
  - Disturbance in attention [None]

NARRATIVE: CASE EVENT DATE: 20211105
